FAERS Safety Report 4514875-9 (Version None)
Quarter: 2004Q4

REPORT INFORMATION
  Report Type: 
  Country: None (occurrence: None)
  Receive Date: 20041201
  Receipt Date: 20041122
  Transmission Date: 20050328
  Serious: Yes (Death)
  Sender: FDA-Public Use
  Company Number: US-JNJFOC-20041105823

PATIENT
  Age: 86 Year
  Sex: Male

DRUGS (1)
  1. RISPERDAL [Suspect]
     Indication: SLEEP DISORDER THERAPY
     Route: 049

REACTIONS (1)
  - PNEUMONIA [None]
